FAERS Safety Report 5012448-5 (Version None)
Quarter: 2006Q2

REPORT INFORMATION
  Report Type: 
  Country: None (occurrence: None)
  Receive Date: 20060526
  Receipt Date: 20060525
  Transmission Date: 20061013
  Serious: Yes (Life-Threatening)
  Sender: FDA-Public Use
  Company Number: GB-BOEHRINGER INGELHEIM PHARMACEUTICALS, INC.-2006-UK-02614UK

PATIENT
  Age: 77 Year
  Sex: Female
  Weight: 80 kg

DRUGS (2)
  1. MICARDIS [Suspect]
     Indication: BLOOD PRESSURE
     Route: 048
  2. BENDROFLUMETHIAZIDE [Concomitant]
     Route: 065

REACTIONS (1)
  - ANGIONEUROTIC OEDEMA [None]
